FAERS Safety Report 5578064-1 (Version None)
Quarter: 2007Q4

REPORT INFORMATION
  Report Type: 
  Country: None (occurrence: None)
  Receive Date: 20071231
  Receipt Date: 20071218
  Transmission Date: 20080405
  Serious: Yes (Hospitalization)
  Sender: FDA-Public Use
  Company Number: CA-ROCHE-535952

PATIENT
  Age: 56 Year
  Sex: Male
  Weight: 92.3 kg

DRUGS (5)
  1. CAPECITABINE [Suspect]
     Indication: GASTRIC CANCER
     Dosage: 2150 MG GIVEN TWICE DAILY FOR FOURTEEN DAYS.
     Route: 048
     Dates: start: 20071122, end: 20071205
  2. EPIRUBICIN [Suspect]
     Indication: GASTRIC CANCER
     Route: 042
     Dates: start: 20071122, end: 20071205
  3. CARBOPLATIN [Suspect]
     Indication: GASTRIC CANCER
     Route: 042
     Dates: start: 20071122, end: 20071205
  4. METOCLOPRAMIDE [Concomitant]
     Dosage: TDD REPORTED AS 10 MG Q4H.
  5. LOPERAMIDE HCL [Concomitant]
     Dosage: TDD REPORTED AS 2 MG PRN.

REACTIONS (4)
  - DIARRHOEA [None]
  - ILIAC ARTERY OCCLUSION [None]
  - VASCULAR OCCLUSION [None]
  - VOMITING [None]
